FAERS Safety Report 25618052 (Version 1)
Quarter: 2025Q3

REPORT INFORMATION
  Report Type: Spontaneous
  Country: JP (occurrence: JP)
  Receive Date: 20250729
  Receipt Date: 20250729
  Transmission Date: 20251021
  Serious: Yes (Death, Other)
  Sender: ELI LILLY AND COMPANY
  Company Number: JP-NShinyaku-EVA202510282ZZLILLY

PATIENT
  Age: 64 Year
  Sex: Female

DRUGS (2)
  1. TADALAFIL [Suspect]
     Active Substance: TADALAFIL
     Indication: Pulmonary arterial hypertension
     Dosage: 40 MG, DAILY
     Route: 048
  2. OPSUMIT [Concomitant]
     Active Substance: MACITENTAN
     Indication: Pulmonary arterial hypertension
     Dosage: 10 MG, DAILY

REACTIONS (8)
  - Right ventricular failure [Fatal]
  - Low cardiac output syndrome [Unknown]
  - Arteriovenous malformation [Unknown]
  - Pneumonia [Unknown]
  - Compression fracture [Unknown]
  - Dizziness [Unknown]
  - Epistaxis [Unknown]
  - Face oedema [Unknown]
